FAERS Safety Report 9066350 (Version 1)
Quarter: 2013Q1

REPORT INFORMATION
  Report Type: Spontaneous
  Country: US (occurrence: US)
  Receive Date: 20130131
  Receipt Date: 20130131
  Transmission Date: 20140127
  Serious: No
  Sender: FDA-Public Use
  Company Number: US-ABBOTT-12P-163-1016701-00

PATIENT
  Age: 50 Year
  Sex: Female

DRUGS (1)
  1. HUMIRA [Suspect]
     Indication: WRONG DRUG ADMINISTERED
     Route: 062
     Dates: start: 20121202

REACTIONS (2)
  - Accidental exposure to product [Not Recovered/Not Resolved]
  - Wrong drug administered [Not Recovered/Not Resolved]
